FAERS Safety Report 4295428-7 (Version None)
Quarter: 2004Q1

REPORT INFORMATION
  Report Type: 
  Country: None (occurrence: None)
  Receive Date: 20040211
  Receipt Date: 20040130
  Transmission Date: 20041129
  Serious: Yes (Hospitalization, Other)
  Sender: FDA-Public Use
  Company Number: HQWYE757830JAN04

PATIENT
  Age: 25 Month
  Sex: Male

DRUGS (3)
  1. CHILDREN'S ADVIL [Suspect]
     Indication: PYREXIA
     Dosage: 105 MG 4X PER 1 DAY ORAL
     Route: 048
     Dates: start: 20020424, end: 20020430
  2. ACETAMINOPHEN [Concomitant]
  3. AUGMENTIN '500' [Concomitant]

REACTIONS (2)
  - CELLULITIS [None]
  - LYMPHADENITIS [None]
